FAERS Safety Report 10772014 (Version 1)
Quarter: 2015Q1

REPORT INFORMATION
  Report Type: Report from Study
  Country: US (occurrence: US)
  Receive Date: 20150206
  Receipt Date: 20150206
  Transmission Date: 20150721
  Serious: Yes (Death, Hospitalization)
  Sender: FDA-Public Use
  Company Number: US-BIOGEN USA-2014BI137971

PATIENT
  Age: 32 Year
  Sex: Female

DRUGS (2)
  1. TYSABRI [Suspect]
     Active Substance: NATALIZUMAB
     Route: 042
     Dates: start: 20141118, end: 20141118
  2. TYSABRI [Suspect]
     Active Substance: NATALIZUMAB
     Indication: MULTIPLE SCLEROSIS
     Route: 042
     Dates: start: 20080229, end: 20140729

REACTIONS (4)
  - Death [Fatal]
  - Intracardiac thrombus [Fatal]
  - Muscle spasms [Not Recovered/Not Resolved]
  - Brain death [Fatal]

NARRATIVE: CASE EVENT DATE: 20141127
